FAERS Safety Report 25062504 (Version 2)
Quarter: 2025Q1

REPORT INFORMATION
  Report Type: Spontaneous
  Country: US (occurrence: US)
  Receive Date: 20250311
  Receipt Date: 20250319
  Transmission Date: 20250409
  Serious: No
  Sender: ROCHE
  Company Number: US-ROCHE-10000226346

PATIENT
  Age: 15 Year
  Sex: Female

DRUGS (1)
  1. NUTROPIN AQ NUSPIN 20 [Suspect]
     Active Substance: SOMATROPIN
     Indication: Hypopituitarism
     Dosage: STRENGTH: 20MG/2ML
     Route: 058
     Dates: start: 202302

REACTIONS (4)
  - Device defective [Unknown]
  - Product complaint [Unknown]
  - Product dose omission issue [Unknown]
  - No adverse event [Unknown]

NARRATIVE: CASE EVENT DATE: 20250302
